FAERS Safety Report 6433759-2 (Version None)
Quarter: 2009Q4

REPORT INFORMATION
  Report Type: 
  Country: None (occurrence: None)
  Receive Date: 20091106
  Receipt Date: 20091106
  Transmission Date: 20100525
  Serious: Yes (Hospitalization)
  Sender: FDA-Public Use
  Company Number: None

PATIENT
  Age: 64 Year
  Sex: Male

DRUGS (1)
  1. PHENAZOPYRIDINE [Suspect]
     Dosage: 200 MG TID PO
     Route: 048
     Dates: start: 20090818, end: 20090829

REACTIONS (2)
  - PANCYTOPENIA [None]
  - RASH [None]
